FAERS Safety Report 23225395 (Version 4)
Quarter: 2023Q4

REPORT INFORMATION
  Report Type: Spontaneous
  Country: US (occurrence: US)
  Receive Date: 20231124
  Receipt Date: 20231204
  Transmission Date: 20240110
  Serious: No
  Sender: FDA-Public Use
  Company Number: US-OPELLA-2023OHG014743

PATIENT
  Sex: Male

DRUGS (1)
  1. ICY HOT LIDOCAINE DRY [Suspect]
     Active Substance: LIDOCAINE\MENTHOL
     Indication: Product used for unknown indication
     Dosage: STRENGTH-4,52 G;1,13 G/126 ML

REACTIONS (2)
  - Drug ineffective [Unknown]
  - No adverse event [Unknown]
